FAERS Safety Report 18162127 (Version 1)
Quarter: 2020Q3

REPORT INFORMATION
  Report Type: Spontaneous
  Country: US (occurrence: US)
  Receive Date: 20200818
  Receipt Date: 20200818
  Transmission Date: 20201103
  Serious: Yes (Death)
  Sender: FDA-Public Use
  Company Number: US-KARYOPHARM-2020KPT000834

PATIENT

DRUGS (1)
  1. XPOVIO [Suspect]
     Active Substance: SELINEXOR
     Indication: RENAL CANCER
     Dosage: 20 MG, 3X/WEEK OR AS DIRECTED
     Route: 048
     Dates: start: 20200724

REACTIONS (5)
  - Disease progression [Unknown]
  - Fatigue [Recovered/Resolved]
  - Dizziness [Unknown]
  - Off label use [Unknown]
  - Death [Fatal]

NARRATIVE: CASE EVENT DATE: 2020
